FAERS Safety Report 7468225-9 (Version None)
Quarter: 2011Q2

REPORT INFORMATION
  Report Type: 
  Country: None (occurrence: None)
  Receive Date: 20110509
  Receipt Date: 20100420
  Transmission Date: 20111010
  Serious: No
  Sender: FDA-Public Use
  Company Number: US-SANOFI-AVENTIS-2010SA020879

PATIENT
  Age: 55 Year
  Sex: Female

DRUGS (1)
  1. APIDRA [Suspect]
     Dosage: VIA PUMP, 3-4 UNITS BOLUS EACH MEAL AND 1.6 U/HR AM AND 1.4 U/HR FOR ABOUT 8 HOURS IN PM.
     Route: 058
     Dates: start: 20050101

REACTIONS (4)
  - FEELING ABNORMAL [None]
  - BLOOD GLUCOSE INCREASED [None]
  - DRUG INEFFECTIVE [None]
  - MOOD ALTERED [None]
